FAERS Safety Report 10939813 (Version 1)
Quarter: 2015Q1

REPORT INFORMATION
  Report Type: Spontaneous
  Country: US (occurrence: None)
  Receive Date: 20150212
  Receipt Date: 20150212
  Transmission Date: 20150721
  Serious: No
  Sender: FDA-Public Use
  Company Number: TPA2010A06052

PATIENT
  Age: 52 Year
  Sex: Male
  Weight: 68.04 kg

DRUGS (3)
  1. COLCHICINE. [Concomitant]
     Active Substance: COLCHICINE
  2. IBUPROFEN. [Concomitant]
     Active Substance: IBUPROFEN
  3. ULORIC [Suspect]
     Active Substance: FEBUXOSTAT
     Indication: GOUT
     Dosage: 1 IN 1 D
     Route: 048
     Dates: start: 20101001

REACTIONS (2)
  - Joint swelling [None]
  - Condition aggravated [None]
